FAERS Safety Report 24448682 (Version 1)
Quarter: 2024Q4

REPORT INFORMATION
  Report Type: Spontaneous
  Country: LB (occurrence: LB)
  Receive Date: 20241017
  Receipt Date: 20241017
  Transmission Date: 20250115
  Serious: Yes (Other)
  Sender: ACCORD
  Company Number: LB-Accord-451564

PATIENT
  Age: 25 Year
  Sex: Female

DRUGS (1)
  1. PACLITAXEL [Suspect]
     Active Substance: PACLITAXEL
     Indication: Epithelioid sarcoma
     Dosage: WEEKLY PACLITAXEL; RECEIVED SIX DOSES

REACTIONS (1)
  - Melaena [Recovered/Resolved]
